FAERS Safety Report 16615638 (Version 1)
Quarter: 2019Q3

REPORT INFORMATION
  Report Type: Spontaneous
  Country: US (occurrence: US)
  Receive Date: 20190610
  Receipt Date: 20190610
  Transmission Date: 20191004
  Serious: Yes (Hospitalization)
  Sender: FDA-Public Use
  Company Number: None

PATIENT
  Age: 48 Year
  Sex: Female

DRUGS (7)
  1. GABAPENTIN CAP [Concomitant]
  2. IBUPROFEN TAB [Concomitant]
  3. MULTAQ TAB [Concomitant]
  4. MAGNESIUM TAB [Concomitant]
  5. HUMIRA [Suspect]
     Active Substance: ADALIMUMAB
     Indication: PSORIASIS
     Route: 058
     Dates: start: 20180428
  6. PRAVASTATIN TAB [Concomitant]
  7. NORVASC TAB [Concomitant]

REACTIONS (2)
  - Product dose omission [None]
  - Gastrointestinal disorder [None]

NARRATIVE: CASE EVENT DATE: 20190524
